FAERS Safety Report 6721376-6 (Version None)
Quarter: 2010Q2

REPORT INFORMATION
  Report Type: 
  Country: None (occurrence: None)
  Receive Date: 20100510
  Receipt Date: 20100503
  Transmission Date: 20101027
  Serious: Yes (Other)
  Sender: FDA-Public Use
  Company Number: 2010SP025213

PATIENT
  Age: 28 Year
  Sex: Female
  Weight: 62 kg

DRUGS (2)
  1. IMPLANON [Suspect]
     Indication: CONTRACEPTION
     Dosage: 68 MG; SBDE
     Route: 059
     Dates: start: 20070920
  2. PENTOXIFYLLINE [Concomitant]

REACTIONS (4)
  - AMENORRHOEA [None]
  - OVARIAN CYST [None]
  - VAGINAL DISCHARGE [None]
  - VAGINAL HAEMORRHAGE [None]
